FAERS Safety Report 25317612 (Version 1)
Quarter: 2025Q2

REPORT INFORMATION
  Report Type: Spontaneous
  Country: IT (occurrence: IT)
  Receive Date: 20250515
  Receipt Date: 20250515
  Transmission Date: 20250717
  Serious: No
  Sender: ALKEM
  Company Number: IT-ALKEM LABORATORIES LIMITED-IT-ALKEM-2024-16425

PATIENT
  Age: 76 Year
  Sex: Male

DRUGS (6)
  1. AZATHIOPRINE [Suspect]
     Active Substance: AZATHIOPRINE
     Indication: Immunosuppressant drug therapy
     Dosage: 50 MILLIGRAM, QD
     Route: 065
  2. AZATHIOPRINE [Suspect]
     Active Substance: AZATHIOPRINE
     Indication: Myasthenia gravis
     Dosage: 150 MILLIGRAM, QD (3, 6 AND 18 MONTHS)
     Route: 065
  3. PYRIDOSTIGMINE BROMIDE [Suspect]
     Active Substance: PYRIDOSTIGMINE BROMIDE
     Indication: Myasthenia gravis
     Dosage: 450 MILLIGRAM, QD
     Route: 065
  4. PYRIDOSTIGMINE BROMIDE [Suspect]
     Active Substance: PYRIDOSTIGMINE BROMIDE
     Dosage: 360 MILLIGRAM, QD
     Route: 065
  5. PYRIDOSTIGMINE BROMIDE [Suspect]
     Active Substance: PYRIDOSTIGMINE BROMIDE
     Dosage: 300 MILLIGRAM, QD
     Route: 065
  6. PYRIDOSTIGMINE BROMIDE [Suspect]
     Active Substance: PYRIDOSTIGMINE BROMIDE
     Dosage: 240 MILLIGRAM, QD
     Route: 065

REACTIONS (23)
  - Bowel movement irregularity [Unknown]
  - Confusional state [Unknown]
  - Cough [Unknown]
  - Dizziness [Unknown]
  - Dyspnoea [Unknown]
  - Decreased appetite [Unknown]
  - Dyspepsia [Unknown]
  - Dysuria [Unknown]
  - Erythema [Unknown]
  - Eye irritation [Unknown]
  - Eye pain [Unknown]
  - Headache [Unknown]
  - Hypoacusis [Unknown]
  - Sensory disturbance [Unknown]
  - Vision blurred [Unknown]
  - Vomiting [Unknown]
  - Abdominal pain upper [Unknown]
  - Arthralgia [Unknown]
  - Conjunctivitis [Unknown]
  - Fungal infection [Unknown]
  - Gastroenteritis [Unknown]
  - Malaise [Unknown]
  - Rash [Unknown]
